FAERS Safety Report 12752177 (Version 2)
Quarter: 2017Q3

REPORT INFORMATION
  Report Type: Spontaneous
  Country: US (occurrence: US)
  Receive Date: 20160915
  Receipt Date: 20170914
  Transmission Date: 20171127
  Serious: No
  Sender: FDA-Public Use
  Company Number: US-ASTELLAS-2016US027043

PATIENT
  Sex: Male

DRUGS (1)
  1. XTANDI [Suspect]
     Active Substance: ENZALUTAMIDE
     Indication: PROSTATE CANCER
     Dosage: 160 MG, (4 CAPSULES) ONCE DAILY AT BEDTIME
     Route: 048
     Dates: start: 20160618

REACTIONS (9)
  - Dyspepsia [Unknown]
  - Asthenia [Unknown]
  - Diarrhoea [Unknown]
  - Feeling abnormal [Unknown]
  - Fatigue [Unknown]
  - Amnesia [Unknown]
  - Decreased interest [Unknown]
  - Constipation [Unknown]
  - Intercepted drug administration error [Unknown]
